FAERS Safety Report 4615971-8 (Version None)
Quarter: 2005Q1

REPORT INFORMATION
  Report Type: 
  Country: None (occurrence: None)
  Receive Date: 20050318
  Receipt Date: 20050302
  Transmission Date: 20050727
  Serious: Yes (Death, Other)
  Sender: FDA-Public Use
  Company Number: 2005036652

PATIENT
  Age: 76 Year
  Sex: Male

DRUGS (3)
  1. SULPERAZON         (SULBACTAM, CEFOPERAZONE) [Suspect]
     Indication: BRONCHOPNEUMONIA
     Dosage: 1 GRAM 0.5 GRAM, 2 IN 1 D, INTRAVENOUS
     Route: 042
     Dates: start: 20041008, end: 20050207
  2. TEICOPLANIN           (TEICOPLANIN) [Concomitant]
  3. CEFPIROME SULFATE            (CEFPIROME SULFATE) [Concomitant]

REACTIONS (8)
  - ANAPHYLACTIC SHOCK [None]
  - ATELECTASIS [None]
  - BLOOD PRESSURE DECREASED [None]
  - BRONCHOPNEUMONIA [None]
  - CARDIO-RESPIRATORY ARREST [None]
  - CONDITION AGGRAVATED [None]
  - OBSTRUCTIVE AIRWAYS DISORDER [None]
  - RESPIRATORY FAILURE [None]
